FAERS Safety Report 17232131 (Version 7)
Quarter: 2020Q4

REPORT INFORMATION
  Report Type: Spontaneous
  Country: US (occurrence: US)
  Receive Date: 20200103
  Receipt Date: 20201202
  Transmission Date: 20210113
  Serious: Yes (Hospitalization, Other)
  Sender: FDA-Public Use
  Company Number: US-PFIZER INC-2020001486

PATIENT
  Age: 80 Year
  Sex: Female
  Weight: 69.84 kg

DRUGS (5)
  1. PREMPRO [Suspect]
     Active Substance: ESTROGENS, CONJUGATED\MEDROXYPROGESTERONE ACETATE
     Indication: HOT FLUSH
     Dosage: 1 DF, DAILY (0.3MG/1.5MG, (90 DAYS), 1 TABLET BY MOUTH DAILY)
     Route: 048
  2. PREMPRO [Suspect]
     Active Substance: ESTROGENS, CONJUGATED\MEDROXYPROGESTERONE ACETATE
     Indication: DRY SKIN
  3. PREMPRO [Suspect]
     Active Substance: ESTROGENS, CONJUGATED\MEDROXYPROGESTERONE ACETATE
     Indication: VULVOVAGINAL DRYNESS
  4. PREMPRO [Suspect]
     Active Substance: ESTROGENS, CONJUGATED\MEDROXYPROGESTERONE ACETATE
     Indication: OSTEOPOROSIS
  5. PREMPRO [Suspect]
     Active Substance: ESTROGENS, CONJUGATED\MEDROXYPROGESTERONE ACETATE
     Indication: HEADACHE

REACTIONS (8)
  - Fall [Unknown]
  - Cardiac disorder [Unknown]
  - Herpes zoster [Recovered/Resolved]
  - Wrist fracture [Recovering/Resolving]
  - Back injury [Unknown]
  - Atrial fibrillation [Recovered/Resolved]
  - Pain [Recovering/Resolving]
  - Immune system disorder [Unknown]

NARRATIVE: CASE EVENT DATE: 2015
